FAERS Safety Report 10096421 (Version 2)
Quarter: 2015Q3

REPORT INFORMATION
  Report Type: Spontaneous
  Country: US (occurrence: US)
  Receive Date: 20140422
  Receipt Date: 20150812
  Transmission Date: 20151125
  Serious: No
  Sender: FDA-Public Use
  Company Number: US-GILEAD-2012-0062667

PATIENT
  Age: 76 Year
  Sex: Female

DRUGS (1)
  1. LETAIRIS [Suspect]
     Active Substance: AMBRISENTAN
     Indication: PRODUCT USED FOR UNKNOWN INDICATION
     Dosage: 5 MG, UNK
     Route: 048
     Dates: start: 20110826

REACTIONS (5)
  - Upper respiratory tract congestion [Unknown]
  - Sinus disorder [Unknown]
  - Rhinorrhoea [Unknown]
  - Dizziness [Unknown]
  - Productive cough [Unknown]

NARRATIVE: CASE EVENT DATE: 2011
